FAERS Safety Report 5501805-6 (Version None)
Quarter: 2007Q4

REPORT INFORMATION
  Report Type: 
  Country: None (occurrence: None)
  Receive Date: 20071030
  Receipt Date: 20071019
  Transmission Date: 20080405
  Serious: Yes (Death, Hospitalization)
  Sender: FDA-Public Use
  Company Number: FR-JNJFOC-20071002068

PATIENT
  Age: 47 Year
  Sex: Male
  Weight: 77 kg

DRUGS (6)
  1. REMICADE [Suspect]
     Indication: COLITIS ULCERATIVE
     Route: 042
  2. CORTANCYL [Concomitant]
     Indication: COLITIS ULCERATIVE
  3. GLUCOPHAGE [Concomitant]
     Indication: DIABETES MELLITUS
     Dosage: USED FOR YEARS
  4. AVANDIA [Concomitant]
     Indication: DIABETES MELLITUS
  5. IMUREL [Concomitant]
     Dosage: FOR THREE MONTHS
     Route: 048
  6. FIVASA [Concomitant]
     Dosage: FOR THREE MONTHS
     Route: 048

REACTIONS (3)
  - COMA [None]
  - HEPATIC CIRRHOSIS [None]
  - HEPATIC ENCEPHALOPATHY [None]
